FAERS Safety Report 24120695 (Version 1)
Quarter: 2024Q3

REPORT INFORMATION
  Report Type: Spontaneous
  Country: US (occurrence: None)
  Receive Date: 20240718
  Receipt Date: 20240718
  Transmission Date: 20241017
  Serious: Yes (Life-Threatening, Hospitalization, Other)
  Sender: Public
  Company Number: None

PATIENT
  Age: 10 Year
  Sex: Male
  Weight: 40.5 kg

DRUGS (4)
  1. FLUOXETINE [Suspect]
     Active Substance: FLUOXETINE HYDROCHLORIDE
     Indication: Anxiety
     Dosage: FREQUENCY : AT BEDTIME;?
     Route: 048
     Dates: start: 20240325, end: 20240523
  2. LEXAPRO [Suspect]
     Active Substance: ESCITALOPRAM OXALATE
     Indication: Anxiety
     Dosage: FREQUENCY : AT BEDTIME;?
     Route: 048
     Dates: end: 20240612
  3. HYDROXYZINE [Suspect]
     Active Substance: HYDROXYZINE HYDROCHLORIDE
  4. MELATONIN [Concomitant]
     Active Substance: MELATONIN

REACTIONS (16)
  - Drug ineffective [None]
  - Therapy change [None]
  - Activation syndrome [None]
  - Suicide attempt [None]
  - Skeletal injury [None]
  - Impulse-control disorder [None]
  - Hyperphagia [None]
  - Body temperature increased [None]
  - Irritability [None]
  - Thinking abnormal [None]
  - Defiant behaviour [None]
  - Suicidal ideation [None]
  - Intentional self-injury [None]
  - Mental disorder [None]
  - Anxiety [None]
  - Injury [None]

NARRATIVE: CASE EVENT DATE: 20240521
